FAERS Safety Report 9099395 (Version 4)
Quarter: 2013Q3

REPORT INFORMATION
  Report Type: Spontaneous
  Country: GB (occurrence: GB)
  Receive Date: 20130213
  Receipt Date: 20130712
  Transmission Date: 20140515
  Serious: Yes (Hospitalization, Other)
  Sender: FDA-Public Use
  Company Number: GB-AMGEN-GBRSP2013009225

PATIENT
  Age: 54 Year
  Sex: Female

DRUGS (1)
  1. ENBREL [Suspect]
     Indication: RHEUMATOID ARTHRITIS
     Dosage: 50 MG, WEEKLY
     Route: 058
     Dates: start: 20130125

REACTIONS (7)
  - Aphasia [Recovered/Resolved]
  - Vision blurred [Recovered/Resolved]
  - Hemiparesis [Recovered/Resolved]
  - Migraine [Recovered/Resolved]
  - Paraesthesia oral [Recovered/Resolved]
  - Dysarthria [Recovered/Resolved]
  - Paraesthesia [Not Recovered/Not Resolved]
